FAERS Safety Report 13381001 (Version 3)
Quarter: 2018Q2

REPORT INFORMATION
  Report Type: Spontaneous
  Country: MY (occurrence: MY)
  Receive Date: 20170329
  Receipt Date: 20180511
  Transmission Date: 20180711
  Serious: Yes (Other)
  Sender: FDA-Public Use
  Company Number: MY-009507513-1703MYS012948

PATIENT
  Sex: Male

DRUGS (3)
  1. TEDIZOLID PHOSPHATE. [Suspect]
     Active Substance: TEDIZOLID PHOSPHATE
     Dosage: 200 MG, UNK
  2. ZYVOX [Suspect]
     Active Substance: LINEZOLID
     Dosage: 600 MG, BID
     Route: 042
  3. FUSIDIC ACID [Concomitant]
     Active Substance: FUSIDIC ACID
     Dosage: UNK

REACTIONS (1)
  - Thrombocytopenia [Unknown]
